FAERS Safety Report 9537717 (Version 5)
Quarter: 2014Q4

REPORT INFORMATION
  Report Type: Report from Study
  Country: JP (occurrence: JP)
  Receive Date: 20130919
  Receipt Date: 20141205
  Transmission Date: 20150529
  Serious: Yes (Hospitalization, Other)
  Sender: FDA-Public Use
  Company Number: JP-AMGEN-JPNCT2013015971

PATIENT
  Sex: Female
  Weight: 52 kg

DRUGS (27)
  1. EXEMESTANE. [Concomitant]
     Active Substance: EXEMESTANE
     Dosage: UNK
     Route: 065
     Dates: start: 20130124
  2. FENTOS [Concomitant]
     Active Substance: FENTANYL
     Dosage: 4 MG, QD
     Route: 050
     Dates: start: 20120918
  3. OXINORM [Concomitant]
     Active Substance: OXYCODONE HYDROCHLORIDE
     Dosage: 5 MG, AS NECESSARY
     Route: 048
     Dates: start: 20120615
  4. OLMETEC [Concomitant]
     Active Substance: OLMESARTAN MEDOXOMIL
     Dosage: 10 MG, BID
     Route: 065
  5. SORENTMIN [Concomitant]
     Active Substance: BROTIZOLAM
     Dosage: 1 DF, QD, VDS
     Route: 065
  6. CALCICHEW [Concomitant]
     Active Substance: CALCIUM CARBONATE
     Dosage: UNK
     Route: 048
     Dates: end: 20130129
  7. CALCIUM L-ASPARTATE [Concomitant]
     Dosage: 1200 MG, UNK
     Route: 048
     Dates: start: 20130130
  8. ALFAROL [Concomitant]
     Active Substance: ALFACALCIDOL
     Dosage: 1 MUG, QD
     Route: 048
     Dates: start: 20130130
  9. NICONAS [Concomitant]
     Dosage: 600 MG, QD
     Route: 048
     Dates: start: 20120925
  10. KAZMARIN [Concomitant]
     Active Substance: DOXAZOSIN MESYLATE
     Dosage: 1 DF, QD, MORNING
     Route: 065
  11. ASPARTATE CALCIUM [Concomitant]
     Dosage: 1200 MG, QD
     Route: 048
     Dates: start: 20130130
  12. TAMOXIFEN [Concomitant]
     Active Substance: TAMOXIFEN
     Dosage: UNK
     Route: 065
     Dates: start: 20120517, end: 20121004
  13. MAGMITT [Concomitant]
     Active Substance: MAGNESIUM OXIDE
     Dosage: 750 MG, QD
     Route: 048
     Dates: start: 20120615
  14. ZOMETA [Concomitant]
     Active Substance: ZOLEDRONIC ACID
     Indication: PRODUCT USED FOR UNKNOWN INDICATION
     Dosage: 4 MG, QD
     Route: 042
     Dates: start: 20120517, end: 20121227
  15. FASLODEX [Concomitant]
     Active Substance: FULVESTRANT
     Dosage: UNK
     Route: 065
     Dates: start: 20121004, end: 20121227
  16. LANSORAL [Concomitant]
     Dosage: 15 MG, QD
     Route: 048
     Dates: start: 20120617
  17. PROMAC [Concomitant]
     Active Substance: NITROFURANTOIN
     Dosage: 1 G, QD
     Route: 048
     Dates: start: 20120906
  18. AMARYL [Concomitant]
     Active Substance: GLIMEPIRIDE
     Dosage: 1 DF, QD, MORNING
     Route: 065
  19. ACARBOSE. [Concomitant]
     Active Substance: ACARBOSE
     Dosage: 1 DF, TID, JUST BEFORE MEAL
     Route: 065
  20. CONIPROS [Concomitant]
     Dosage: 1 DF, BID
     Route: 065
  21. ZOLPIDEM [Concomitant]
     Active Substance: ZOLPIDEM\ZOLPIDEM TARTRATE
     Dosage: 0.5 DF, QD, VDS
     Route: 065
  22. TAMOXIFEN CITRATE. [Concomitant]
     Active Substance: TAMOXIFEN CITRATE
     Dosage: UNK
     Route: 065
     Dates: start: 20120517, end: 20121004
  23. FASLODEX [Concomitant]
     Active Substance: FULVESTRANT
     Dosage: UNK
     Route: 065
     Dates: start: 20121004, end: 20121227
  24. ARIMIDEX [Concomitant]
     Active Substance: ANASTROZOLE
     Dosage: UNK
     Route: 065
     Dates: start: 20080221, end: 20120517
  25. RIKKUNSHITO                        /08041001/ [Concomitant]
     Dosage: 6 G, QD
     Route: 048
     Dates: start: 20130227
  26. ETIZOLAM [Concomitant]
     Active Substance: ETIZOLAM
     Dosage: 1 DF, QD, VDS
     Route: 065
  27. DENOSUMAB [Suspect]
     Active Substance: DENOSUMAB
     Indication: METASTASES TO BONE
     Dosage: 120 MG, UNK
     Route: 058
     Dates: start: 20130124

REACTIONS (7)
  - Hypophosphataemia [Recovered/Resolved]
  - Gingivitis [Recovered/Resolved]
  - Hypophosphataemia [Recovered/Resolved]
  - Hypocalcaemia [Recovered/Resolved]
  - Osteonecrosis of jaw [Unknown]
  - Hypokalaemia [Recovered/Resolved]
  - Gingivitis [Not Recovered/Not Resolved]

NARRATIVE: CASE EVENT DATE: 20130124
